FAERS Safety Report 17323541 (Version 2)
Quarter: 2022Q2

REPORT INFORMATION
  Report Type: Spontaneous
  Country: US (occurrence: US)
  Receive Date: 20200127
  Receipt Date: 20220506
  Transmission Date: 20220721
  Serious: No
  Sender: FDA-Public Use
  Company Number: US-BIOGEN-2019BI00820568

PATIENT
  Sex: Female

DRUGS (2)
  1. TECFIDERA [Suspect]
     Active Substance: DIMETHYL FUMARATE
     Indication: Multiple sclerosis
     Route: 048
     Dates: start: 2014, end: 2016
  2. TECFIDERA [Suspect]
     Active Substance: DIMETHYL FUMARATE
     Route: 065
     Dates: start: 20190626, end: 20210630

REACTIONS (9)
  - Product dose omission issue [Unknown]
  - Expired product administered [Unknown]
  - Eye swelling [Not Recovered/Not Resolved]
  - Diplopia [Unknown]
  - Vision blurred [Unknown]
  - Multiple allergies [Unknown]
  - Fatigue [Unknown]
  - Asthenia [Unknown]
  - Infection [Unknown]
